FAERS Safety Report 5304614-6 (Version None)
Quarter: 2007Q2

REPORT INFORMATION
  Report Type: 
  Country: None (occurrence: None)
  Receive Date: 20070423
  Receipt Date: 20070413
  Transmission Date: 20071010
  Serious: Yes (Other)
  Sender: FDA-Public Use
  Company Number: IE-GLAXOSMITHKLINE-B0465201A

PATIENT
  Age: 57 Year
  Sex: Female
  Weight: 63.6 kg

DRUGS (2)
  1. MALARONE [Suspect]
     Indication: MALARIA PROPHYLAXIS
     Route: 048
     Dates: start: 20061221, end: 20061226
  2. PROZAC [Concomitant]
     Indication: DEPRESSION
     Dosage: 20MG ALTERNATE DAYS
     Route: 065
     Dates: start: 20050101

REACTIONS (12)
  - ANOREXIA [None]
  - EYE SWELLING [None]
  - FACE OEDEMA [None]
  - FATIGUE [None]
  - HEADACHE [None]
  - NASAL OEDEMA [None]
  - PHOTOPHOBIA [None]
  - PHOTOSENSITIVITY REACTION [None]
  - RASH [None]
  - ROSACEA [None]
  - SKIN EXFOLIATION [None]
  - THIRST [None]
